FAERS Safety Report 9735425 (Version 1)
Quarter: 2013Q4

REPORT INFORMATION
  Report Type: Spontaneous
  Country: US (occurrence: None)
  Receive Date: 20131205
  Receipt Date: 20131205
  Transmission Date: 20140711
  Serious: No
  Sender: FDA-Public Use
  Company Number: None

PATIENT
  Age: 62 Year
  Sex: Female
  Weight: 107.96 kg

DRUGS (2)
  1. MOVIPREP [Suspect]
     Indication: BOWEL PREPARATION
     Dosage: TWO, 2-PART PACKETS; 2X EVENING BEFORE COLONOSCO
     Route: 048
     Dates: start: 20131124, end: 20131124
  2. MOVIPREP [Suspect]
     Indication: COLONOSCOPY
     Dosage: TWO, 2-PART PACKETS; 2X EVENING BEFORE COLONOSCO
     Route: 048
     Dates: start: 20131124, end: 20131124

REACTIONS (4)
  - Drug ineffective [None]
  - Impaired work ability [None]
  - Economic problem [None]
  - Physical product label issue [None]
